FAERS Safety Report 13250938 (Version 1)
Quarter: 2017Q1

REPORT INFORMATION
  Report Type: Spontaneous
  Country: US (occurrence: US)
  Receive Date: 20170220
  Receipt Date: 20170220
  Transmission Date: 20170428
  Serious: No
  Sender: FDA-Public Use
  Company Number: US-TEVA-731539ACC

PATIENT
  Sex: Female
  Weight: 5.9 kg

DRUGS (1)
  1. AMOXICILLIN FOR ORAL SUSPENSION [Suspect]
     Active Substance: AMOXICILLIN
     Indication: EAR INFECTION
     Route: 048
     Dates: start: 20161111, end: 20161115

REACTIONS (3)
  - Vomiting [Not Recovered/Not Resolved]
  - Abdominal pain upper [Not Recovered/Not Resolved]
  - Infantile spitting up [Not Recovered/Not Resolved]
